FAERS Safety Report 19199665 (Version 3)
Quarter: 2021Q3

REPORT INFORMATION
  Report Type: Report from Study
  Country: US (occurrence: US)
  Receive Date: 20210430
  Receipt Date: 20210726
  Transmission Date: 20211014
  Serious: Yes (Hospitalization, Other)
  Sender: FDA-Public Use
  Company Number: NVSC2021US089872

PATIENT
  Age: 64 Year
  Sex: Female

DRUGS (3)
  1. ENTRESTO [Suspect]
     Active Substance: SACUBITRIL\VALSARTAN
     Indication: PRODUCT USED FOR UNKNOWN INDICATION
     Dosage: 49/51 MG, BID
     Route: 048
     Dates: start: 20210224
  2. METOLAZONE. [Suspect]
     Active Substance: METOLAZONE
     Indication: CARDIAC FAILURE CHRONIC
  3. METOLAZONE. [Suspect]
     Active Substance: METOLAZONE
     Indication: OEDEMA
     Dosage: UNK
     Route: 065
     Dates: start: 2021, end: 20210413

REACTIONS (14)
  - Oedema [Recovering/Resolving]
  - Peripheral swelling [Recovering/Resolving]
  - Balance disorder [Recovering/Resolving]
  - Therapeutic product effect incomplete [Not Recovered/Not Resolved]
  - Feeling abnormal [Recovering/Resolving]
  - Pain [Recovering/Resolving]
  - COVID-19 [Recovering/Resolving]
  - Insomnia [Recovering/Resolving]
  - Cellulitis staphylococcal [Not Recovered/Not Resolved]
  - Erythema [Recovering/Resolving]
  - Asthenia [Recovered/Resolved]
  - Malaise [Recovered/Resolved]
  - Fatigue [Recovering/Resolving]
  - Heart rate increased [Not Recovered/Not Resolved]

NARRATIVE: CASE EVENT DATE: 20210224
